FAERS Safety Report 11130650 (Version 1)
Quarter: 2015Q2

REPORT INFORMATION
  Report Type: Spontaneous
  Country: US (occurrence: None)
  Receive Date: 20150521
  Receipt Date: 20150521
  Transmission Date: 20150821
  Serious: Yes (Death)
  Sender: FDA-Public Use
  Company Number: None

PATIENT
  Age: 57 Year
  Sex: Male

DRUGS (1)
  1. LEDIPASVIR/SOFOSBUVIR [Suspect]
     Active Substance: LEDIPASVIR\SOFOSBUVIR
     Indication: HEPATITIS C
     Route: 048
     Dates: start: 20141213, end: 20150425

REACTIONS (7)
  - Cardiac arrest [None]
  - Intestinal infarction [None]
  - Metabolic acidosis [None]
  - Abdominal pain [None]
  - Diarrhoea [None]
  - Vomiting [None]
  - Intestinal ischaemia [None]

NARRATIVE: CASE EVENT DATE: 20150425
